FAERS Safety Report 7167144-5 (Version None)
Quarter: 2010Q4

REPORT INFORMATION
  Report Type: 
  Country: None (occurrence: None)
  Receive Date: 20101216
  Receipt Date: 20101206
  Transmission Date: 20110411
  Serious: Yes (Hospitalization)
  Sender: FDA-Public Use
  Company Number: GXKR2010GB13798

PATIENT
  Age: 68 Year
  Sex: Male
  Weight: 114 kg

DRUGS (6)
  1. ATORVASTATIN (NGX) [Suspect]
     Indication: TRANSIENT ISCHAEMIC ATTACK
     Dosage: 10 G, UNK
     Route: 048
     Dates: start: 20051118, end: 20100820
  2. WARFARIN (NGX) [Suspect]
     Indication: ATRIAL FIBRILLATION
     Dosage: 4 G, UNK
     Route: 048
     Dates: start: 20100810
  3. ADCAL-D3 [Concomitant]
     Dosage: 2 DF, UNK
     Route: 048
     Dates: start: 20100831
  4. ALENDRONATE SODIUM [Concomitant]
     Indication: PROPHYLAXIS
     Dosage: 70 G, UNK
     Route: 048
     Dates: start: 20020601
  5. BISOPROLOL [Concomitant]
     Indication: ATRIAL FIBRILLATION
     Dosage: 2.5 MG, UNK
     Route: 048
     Dates: start: 20100526
  6. PREDNISOLONE [Concomitant]
     Indication: POLYMYALGIA RHEUMATICA
     Dosage: 5 MG, UNK
     Route: 048
     Dates: start: 20100101

REACTIONS (1)
  - RHABDOMYOLYSIS [None]
